FAERS Safety Report 9281134 (Version 3)
Quarter: 2013Q3

REPORT INFORMATION
  Report Type: Spontaneous
  Country: US (occurrence: US)
  Receive Date: 20130509
  Receipt Date: 20130805
  Transmission Date: 20140515
  Serious: Yes (Hospitalization, Congenital Anomaly)
  Sender: FDA-Public Use
  Company Number: US-JNJFOC-20130503401

PATIENT
  Sex: Female

DRUGS (4)
  1. TOPAMAX [Suspect]
     Indication: FOETAL EXPOSURE DURING PREGNANCY
     Route: 064
  2. LAMICTAL [Suspect]
     Indication: FOETAL EXPOSURE DURING PREGNANCY
     Route: 064
  3. PRENATAL VITAMINS [Concomitant]
     Indication: FOETAL EXPOSURE DURING PREGNANCY
     Route: 064
  4. FOLIC ACID [Concomitant]
     Indication: FOETAL EXPOSURE DURING PREGNANCY
     Route: 064

REACTIONS (2)
  - Congenital anomaly [Unknown]
  - Accessory auricle [Unknown]
